FAERS Safety Report 7700867-5 (Version None)
Quarter: 2011Q3

REPORT INFORMATION
  Report Type: 
  Country: None (occurrence: None)
  Receive Date: 20110817
  Receipt Date: 20110801
  Transmission Date: 20111222
  Serious: Yes (Disabling)
  Sender: FDA-Public Use
  Company Number: 2011MA009184

PATIENT
  Age: 79 Year
  Sex: Female

DRUGS (8)
  1. HYDROCHLOROTHIAZIDE [Concomitant]
  2. DONEPEZIL HYDRCHLORIDE [Suspect]
     Indication: DEMENTIA ALZHEIMER'S TYPE
     Dosage: 5 MG;QD
  3. PROPAFENONE HCL [Concomitant]
  4. CILAZAPRIL [Concomitant]
  5. LEVOTHYROXINE SODIUM [Concomitant]
  6. WARFARIN SODIUM [Concomitant]
  7. ATORVASTATIN [Concomitant]
  8. MEMANTINE HCL [Suspect]
     Indication: DEMENTIA ALZHEIMER'S TYPE
     Dosage: 5 MG;QD

REACTIONS (6)
  - ALANINE AMINOTRANSFERASE INCREASED [None]
  - ABASIA [None]
  - PROTHROMBIN TIME PROLONGED [None]
  - INTERNATIONAL NORMALISED RATIO INCREASED [None]
  - SPEECH DISORDER [None]
  - ASPARTATE AMINOTRANSFERASE INCREASED [None]
